FAERS Safety Report 19685736 (Version 1)
Quarter: 2021Q3

REPORT INFORMATION
  Report Type: Spontaneous
  Country: JP (occurrence: JP)
  Receive Date: 20210811
  Receipt Date: 20210811
  Transmission Date: 20211014
  Serious: Yes (Other)
  Sender: FDA-Public Use
  Company Number: JP-ROCHE-2875146

PATIENT
  Age: 66 Year
  Sex: Male

DRUGS (6)
  1. POLIVY [Suspect]
     Active Substance: POLATUZUMAB VEDOTIN-PIIQ
     Route: 041
  2. BENDAMUSTINE HYDROCHLORIDE. [Concomitant]
     Active Substance: BENDAMUSTINE HYDROCHLORIDE
     Route: 041
  3. RITUXIMAB. [Concomitant]
     Active Substance: RITUXIMAB
     Route: 041
  4. POLIVY [Suspect]
     Active Substance: POLATUZUMAB VEDOTIN-PIIQ
     Indication: DIFFUSE LARGE B-CELL LYMPHOMA
     Route: 041
     Dates: start: 20210618, end: 20210618
  5. RITUXIMAB. [Concomitant]
     Active Substance: RITUXIMAB
     Indication: DIFFUSE LARGE B-CELL LYMPHOMA
     Route: 041
     Dates: start: 20210615, end: 20210615
  6. BENDAMUSTINE HYDROCHLORIDE. [Concomitant]
     Active Substance: BENDAMUSTINE HYDROCHLORIDE
     Indication: DIFFUSE LARGE B-CELL LYMPHOMA
     Route: 041
     Dates: start: 20210616, end: 20210617

REACTIONS (5)
  - Infusion site swelling [Recovering/Resolving]
  - Infusion site erythema [Recovering/Resolving]
  - Infection [Unknown]
  - Infusion site extravasation [Recovering/Resolving]
  - Infusion site pain [Recovering/Resolving]

NARRATIVE: CASE EVENT DATE: 20210618
